FAERS Safety Report 5821223-0 (Version None)
Quarter: 2008Q3

REPORT INFORMATION
  Report Type: 
  Country: None (occurrence: None)
  Receive Date: 20080724
  Receipt Date: 20080715
  Transmission Date: 20090109
  Serious: Yes (Death)
  Sender: FDA-Public Use
  Company Number: FR-WYE-H05183808

PATIENT
  Weight: 1.66 kg

DRUGS (2)
  1. EFFEXOR [Suspect]
     Route: 064
  2. CLONAZEPAM [Concomitant]
     Route: 064

REACTIONS (2)
  - DRUG TOXICITY [None]
  - INTRA-UTERINE DEATH [None]
